FAERS Safety Report 4412238-8 (Version None)
Quarter: 2004Q3

REPORT INFORMATION
  Report Type: 
  Country: None (occurrence: None)
  Receive Date: 20040727
  Receipt Date: 20040712
  Transmission Date: 20050211
  Serious: Yes (Other)
  Sender: FDA-Public Use
  Company Number: US-JNJFOC-20040401830

PATIENT
  Age: 9 Year
  Sex: Female
  Weight: 25.4014 kg

DRUGS (5)
  1. REMICADE [Suspect]
     Indication: CROHN'S DISEASE
     Dosage: 110 + 120 MG, INTRAVENOUS
     Route: 042
     Dates: start: 20040223
  2. REMICADE [Suspect]
     Indication: CROHN'S DISEASE
     Dosage: 110 + 120 MG, INTRAVENOUS
     Route: 042
     Dates: start: 20040311
  3. REMICADE [Suspect]
     Indication: CROHN'S DISEASE
     Dosage: 110 + 120 MG, INTRAVENOUS
     Route: 042
     Dates: start: 20040412
  4. IMURAN [Concomitant]
  5. MULTIVITAMIN (MULTIVITAMINS) [Concomitant]

REACTIONS (7)
  - ABNORMAL BEHAVIOUR [None]
  - AGGRESSION [None]
  - AGITATION [None]
  - EUPHORIC MOOD [None]
  - HEADACHE [None]
  - INTENTIONAL SELF-INJURY [None]
  - MYALGIA [None]
